FAERS Safety Report 19949454 (Version 1)
Quarter: 2021Q4

REPORT INFORMATION
  Report Type: Spontaneous
  Country: US (occurrence: US)
  Receive Date: 20211012
  Receipt Date: 20211012
  Transmission Date: 20220303
  Serious: Yes (Hospitalization)
  Sender: FDA-Public Use
  Company Number: None

PATIENT
  Age: 61 Year
  Sex: Male

DRUGS (2)
  1. TRIKAFTA [Suspect]
     Active Substance: ELEXACAFTOR\IVACAFTOR\TEZACAFTOR
     Indication: Cystic fibrosis
     Route: 048
     Dates: start: 20210826, end: 20210923
  2. LIALDA [Concomitant]
     Active Substance: MESALAMINE
     Dates: start: 20210827

REACTIONS (8)
  - Leukocytosis [None]
  - Constipation [None]
  - Chromaturia [None]
  - Abdominal pain [None]
  - Glucose urine present [None]
  - Blood urine present [None]
  - Drug-induced liver injury [None]
  - Therapy cessation [None]

NARRATIVE: CASE EVENT DATE: 20210921
